FAERS Safety Report 24240040 (Version 1)
Quarter: 2024Q3

REPORT INFORMATION
  Report Type: Spontaneous
  Country: US (occurrence: US)
  Receive Date: 20240822
  Receipt Date: 20240822
  Transmission Date: 20241017
  Serious: No
  Sender: PFIZER
  Company Number: US-PFIZER INC-202400241071

PATIENT
  Age: 69 Year
  Sex: Female

DRUGS (1)
  1. ERYTHROMYCIN [Suspect]
     Active Substance: ERYTHROMYCIN

REACTIONS (3)
  - Abdominal discomfort [Unknown]
  - Dizziness [Unknown]
  - Urticaria [Unknown]

NARRATIVE: CASE EVENT DATE: 20200309
